FAERS Safety Report 7754598-6 (Version None)
Quarter: 2011Q3

REPORT INFORMATION
  Report Type: 
  Country: None (occurrence: None)
  Receive Date: 20110915
  Receipt Date: 20110826
  Transmission Date: 20111222
  Serious: Yes (Other)
  Sender: FDA-Public Use
  Company Number: BG-AMGEN-BGRSP2010004431

PATIENT
  Age: 31 Year
  Sex: Female
  Weight: 61 kg

DRUGS (4)
  1. NPLATE [Suspect]
     Dosage: UNK
     Dates: start: 20110522
  2. NPLATE [Suspect]
     Indication: IDIOPATHIC THROMBOCYTOPENIC PURPURA
     Dosage: 0.15 ML, QWK
     Route: 058
     Dates: start: 20101005, end: 20101019
  3. MATERNA                            /01700601/ [Concomitant]
     Route: 048
  4. PREDNISOLONE [Concomitant]
     Indication: IDIOPATHIC THROMBOCYTOPENIC PURPURA
     Dosage: 40 MG, QD
     Route: 048
     Dates: start: 20101019, end: 20110523

REACTIONS (1)
  - PREMATURE DELIVERY [None]
